FAERS Safety Report 4767395-0 (Version None)
Quarter: 2005Q3

REPORT INFORMATION
  Report Type: 
  Country: None (occurrence: None)
  Receive Date: 20050909
  Receipt Date: 20050830
  Transmission Date: 20060218
  Serious: Yes (Other)
  Sender: FDA-Public Use
  Company Number: 2005123080

PATIENT
  Age: 30 Year
  Sex: Female

DRUGS (2)
  1. VIRACEPT [Suspect]
     Indication: HIV INFECTION
     Dosage: 3000 MG (DAILY), ORAL
     Route: 048
  2. COMBIVIR [Suspect]
     Indication: HIV INFECTION
     Dosage: 900 MG (DAILY), ORAL
     Route: 048

REACTIONS (3)
  - ABORTION SPONTANEOUS [None]
  - DRUG EXPOSURE DURING PREGNANCY [None]
  - PREGNANCY [None]
